FAERS Safety Report 5201612-8 (Version None)
Quarter: 2006Q4

REPORT INFORMATION
  Report Type: 
  Country: None (occurrence: None)
  Receive Date: 20061006
  Receipt Date: 20060209
  Transmission Date: 20070319
  Serious: Yes (Other)
  Sender: FDA-Public Use
  Company Number: 200512817BWH

PATIENT
  Sex: Female

DRUGS (1)
  1. CIPRO [Suspect]
     Dosage: ORAL
     Route: 048

REACTIONS (3)
  - DYSAESTHESIA [None]
  - RASH [None]
  - VASCULITIS [None]
